FAERS Safety Report 26109697 (Version 1)
Quarter: 2025Q4

REPORT INFORMATION
  Report Type: Spontaneous
  Country: UA (occurrence: UA)
  Receive Date: 20251201
  Receipt Date: 20251201
  Transmission Date: 20260118
  Serious: Yes (Death)
  Sender: MYLAN
  Company Number: UA-MYLANLABS-2025M1101110

PATIENT
  Age: 41 Year
  Sex: Female

DRUGS (2)
  1. PRETOMANID [Suspect]
     Active Substance: PRETOMANID
     Indication: Tuberculosis
     Dosage: 0.2 GRAM, QD
     Dates: start: 20250618, end: 20250627
  2. BEDAQUILINE [Suspect]
     Active Substance: BEDAQUILINE
     Indication: Tuberculosis
     Dosage: 0.2 GRAM, 3XW (1 TABLET CONTAINS 120.89 MG OF BEDAQUILINE FUMARATE (EQUIVALENT TO 100 MG)
     Dates: start: 20250618, end: 20250627

REACTIONS (1)
  - Death [Fatal]

NARRATIVE: CASE EVENT DATE: 20250627
